FAERS Safety Report 7971251-4 (Version None)
Quarter: 2011Q4

REPORT INFORMATION
  Report Type: 
  Country: None (occurrence: None)
  Receive Date: 20111212
  Receipt Date: 20101122
  Transmission Date: 20120403
  Serious: Yes (Hospitalization)
  Sender: FDA-Public Use
  Company Number: US-BRISTOL-MYERS SQUIBB COMPANY-15341357

PATIENT
  Age: 56 Year
  Sex: Female

DRUGS (2)
  1. XELODA [Suspect]
     Indication: BREAST CANCER
     Dates: start: 20100323, end: 20100510
  2. IXEMPRA KIT [Suspect]
     Indication: BREAST CANCER
     Dosage: 60MG(LOADING DOSE) AND REDUCED TO 45MG(MAINTENANCE DOSE)
     Dates: start: 20100325, end: 20100803

REACTIONS (4)
  - NEUTROPENIA [None]
  - BLOOD MAGNESIUM DECREASED [None]
  - ENTERITIS [None]
  - DEHYDRATION [None]
